FAERS Safety Report 11177539 (Version 2)
Quarter: 2015Q3

REPORT INFORMATION
  Report Type: Spontaneous
  Country: US (occurrence: US)
  Receive Date: 20150610
  Receipt Date: 20150701
  Transmission Date: 20151125
  Serious: Yes (Death)
  Sender: FDA-Public Use
  Company Number: US-PFIZER INC-2015191924

PATIENT
  Age: 59 Year
  Sex: Female

DRUGS (1)
  1. VFEND [Suspect]
     Active Substance: VORICONAZOLE
     Indication: ANTIFUNGAL TREATMENT
     Dosage: 200 MG, 2X/DAY
     Dates: end: 20150522

REACTIONS (4)
  - Lung transplant [Fatal]
  - Viral infection [Fatal]
  - Lower gastrointestinal haemorrhage [Fatal]
  - Pneumonia [Fatal]
